FAERS Safety Report 7445613-8 (Version None)
Quarter: 2011Q2

REPORT INFORMATION
  Report Type: 
  Country: None (occurrence: None)
  Receive Date: 20110429
  Receipt Date: 20110426
  Transmission Date: 20111010
  Serious: No
  Sender: FDA-Public Use
  Company Number: US-TEVA-278635USA

PATIENT
  Sex: Female
  Weight: 79.45 kg

DRUGS (3)
  1. PLAN B ONE-STEP [Suspect]
     Indication: POST COITAL CONTRACEPTION
     Dosage: 1.5 MILLIGRAM;
     Route: 048
  2. LITHIUM CARBONATE [Concomitant]
     Indication: AFFECTIVE DISORDER
  3. RISPERDAL [Concomitant]
     Indication: AFFECTIVE DISORDER

REACTIONS (5)
  - DIARRHOEA [None]
  - PYREXIA [None]
  - ABDOMINAL DISCOMFORT [None]
  - GASTROENTERITIS VIRAL [None]
  - NAUSEA [None]
